FAERS Safety Report 25926911 (Version 1)
Quarter: 2025Q4

REPORT INFORMATION
  Report Type: Spontaneous
  Country: US (occurrence: US)
  Receive Date: 20251015
  Receipt Date: 20251015
  Transmission Date: 20260118
  Serious: No
  Sender: ABBVIE
  Company Number: US-ABBVIE-6502229

PATIENT
  Sex: Female

DRUGS (2)
  1. DUOPA [Suspect]
     Active Substance: CARBIDOPA\LEVODOPA
     Indication: Product used for unknown indication
     Dosage: START DATE TEXT: EITHER DEC 2019 OR JAN 2020?STOP DATE TEXT: ONGOING INTERCHANGING W VYALEV
     Route: 050
  2. DUOPA [Suspect]
     Active Substance: CARBIDOPA\LEVODOPA

REACTIONS (9)
  - Movement disorder [Unknown]
  - Dystonia [Unknown]
  - Tremor [Unknown]
  - Gait inability [Unknown]
  - Retching [Unknown]
  - Muscle spasms [Unknown]
  - Cough [Unknown]
  - Constipation [Unknown]
  - Musculoskeletal stiffness [Unknown]
